FAERS Safety Report 6032597-2 (Version None)
Quarter: 2009Q1

REPORT INFORMATION
  Report Type: 
  Country: None (occurrence: None)
  Receive Date: 20090107
  Receipt Date: 20081222
  Transmission Date: 20090719
  Serious: Yes (Death)
  Sender: FDA-Public Use
  Company Number: DSA_32963_2008

PATIENT
  Age: 53 Year
  Sex: Female

DRUGS (1)
  1. DILTIAZEM HCL [Suspect]
     Indication: INTENTIONAL OVERDOSE
     Dosage: 600 MG 1X, NOT THE PRESCRIBED AMOUNT ORAL)
     Route: 048
     Dates: start: 20070101, end: 20070101

REACTIONS (8)
  - AGGRESSION [None]
  - AV DISSOCIATION [None]
  - BLOOD PRESSURE DECREASED [None]
  - BODY TEMPERATURE DECREASED [None]
  - CARDIAC ARREST [None]
  - COMPLETED SUICIDE [None]
  - ELECTROCARDIOGRAM QT PROLONGED [None]
  - RESPIRATORY RATE INCREASED [None]
